FAERS Safety Report 4762455-2 (Version None)
Quarter: 2005Q3

REPORT INFORMATION
  Report Type: 
  Country: None (occurrence: None)
  Receive Date: 20050907
  Receipt Date: 20050617
  Transmission Date: 20060218
  Serious: Yes (Hospitalization, Disabling)
  Sender: FDA-Public Use
  Company Number: 2005UW09324

PATIENT
  Age: 58 Year
  Sex: Female
  Weight: 194.1 kg

DRUGS (4)
  1. SEROQUEL [Suspect]
     Indication: BIPOLAR DISORDER
     Route: 048
     Dates: start: 20001211, end: 20050606
  2. TEGRETOL [Concomitant]
     Indication: CONVULSION
     Route: 048
     Dates: start: 20000822
  3. TEGRETOL [Concomitant]
     Indication: BIPOLAR DISORDER
     Route: 048
     Dates: start: 20000822
  4. DEPAKOTE [Concomitant]
     Indication: BIPOLAR DISORDER
     Route: 048
     Dates: start: 20050606

REACTIONS (19)
  - ABASIA [None]
  - ANAL INFECTION [None]
  - ASTHENIA [None]
  - BACTERIAL INFECTION [None]
  - BLOOD PRESSURE INCREASED [None]
  - COORDINATION ABNORMAL [None]
  - DIABETES MELLITUS [None]
  - DIABETIC KETOACIDOSIS [None]
  - DYSPNOEA [None]
  - FALL [None]
  - FUNGAL SKIN INFECTION [None]
  - HEART RATE INCREASED [None]
  - HYPOKALAEMIA [None]
  - HYPOPHOSPHATAEMIA [None]
  - OBESITY [None]
  - RASH PUSTULAR [None]
  - TACHYPNOEA [None]
  - VAGINAL CANDIDIASIS [None]
  - WEIGHT INCREASED [None]
